FAERS Safety Report 18082926 (Version 1)
Quarter: 2020Q3

REPORT INFORMATION
  Report Type: Spontaneous
  Country: US (occurrence: US)
  Receive Date: 20200729
  Receipt Date: 20200729
  Transmission Date: 20201103
  Serious: No
  Sender: FDA-Public Use
  Company Number: US-BRISTOL-MYERS SQUIBB COMPANY-BMS-2020-060475

PATIENT
  Age: 77 Year
  Sex: Female

DRUGS (1)
  1. ELIQUIS [Suspect]
     Active Substance: APIXABAN
     Indication: CEREBROVASCULAR ACCIDENT PROPHYLAXIS
     Dosage: 5 MILLIGRAM, BID
     Route: 048
     Dates: start: 20200505, end: 2020

REACTIONS (6)
  - Feeling cold [Unknown]
  - Visual impairment [Unknown]
  - Pollakiuria [Unknown]
  - Dizziness [Unknown]
  - Pruritus [Unknown]
  - Dysphagia [Unknown]

NARRATIVE: CASE EVENT DATE: 20200505
